FAERS Safety Report 10156746 (Version 1)
Quarter: 2014Q2

REPORT INFORMATION
  Report Type: Spontaneous
  Country: US (occurrence: None)
  Receive Date: 20140506
  Receipt Date: 20140506
  Transmission Date: 20141212
  Serious: Yes (Hospitalization)
  Sender: FDA-Public Use
  Company Number: None

PATIENT
  Age: 54 Year
  Sex: Male

DRUGS (1)
  1. PHENYTOIN [Suspect]
     Indication: CONVULSION PROPHYLAXIS
     Dosage: 200 MG, EVERY 12 HOURS, PO
     Route: 048
     Dates: end: 20130321

REACTIONS (2)
  - Toxicity to various agents [None]
  - Anticonvulsant drug level increased [None]
